FAERS Safety Report 4830713-9 (Version None)
Quarter: 2005Q4

REPORT INFORMATION
  Report Type: 
  Country: None (occurrence: None)
  Receive Date: 20051115
  Receipt Date: 20051102
  Transmission Date: 20060501
  Serious: Yes (Other)
  Sender: FDA-Public Use
  Company Number: 219198

PATIENT
  Sex: Male

DRUGS (2)
  1. MABTHERA(RITUXIMAB) CONC FOR SOLUTION FOR INFUSION [Suspect]
     Indication: WALDENSTROM'S MACROGLOBULINAEMIA
     Dosage: 375 MG/M2, 1 WEEK, INTRAVENOUS
     Route: 042
     Dates: start: 20051026, end: 20051026
  2. WARAN (WARFARINN SODIUM) [Concomitant]

REACTIONS (3)
  - HAEMORRHAGE [None]
  - ISCHAEMIA [None]
  - PAPILLOEDEMA [None]
